FAERS Safety Report 5571844-8 (Version None)
Quarter: 2007Q4

REPORT INFORMATION
  Report Type: 
  Country: None (occurrence: None)
  Receive Date: 20071221
  Receipt Date: 20071031
  Transmission Date: 20080405
  Serious: No
  Sender: FDA-Public Use
  Company Number: US-BAYER-US-2007-041458

PATIENT
  Age: 33 Year
  Sex: Female
  Weight: 79 kg

DRUGS (5)
  1. YAZ [Suspect]
     Indication: UTERINE HAEMORRHAGE
     Route: 048
     Dates: start: 20071021, end: 20071022
  2. LEXAPRO [Concomitant]
  3. ZYRTEC [Concomitant]
  4. ALLERGY SHOTS [Concomitant]
  5. COPPER T MODEL TCU 380A [Concomitant]
     Route: 015

REACTIONS (5)
  - DYSPEPSIA [None]
  - DYSPNOEA [None]
  - DYSPNOEA EXERTIONAL [None]
  - MUSCLE SPASMS [None]
  - PAIN [None]
